FAERS Safety Report 18141455 (Version 1)
Quarter: 2020Q3

REPORT INFORMATION
  Report Type: Spontaneous
  Country: DE (occurrence: DE)
  Receive Date: 20200812
  Receipt Date: 20200812
  Transmission Date: 20201103
  Serious: Yes (Life-Threatening, Hospitalization)
  Sender: FDA-Public Use
  Company Number: DE-CURIUM-202000279

PATIENT
  Age: 68 Year
  Sex: Male

DRUGS (23)
  1. NITRENDIPIN [Suspect]
     Active Substance: NITRENDIPINE
     Dosage: 20 MG, 1?0?1?0
     Route: 048
  2. RANEXA 375MG [Concomitant]
     Dosage: 375 MG, 1?0?1?0, TABLETTEN
     Route: 048
  3. ACETYLSALICYLS?URE [Concomitant]
     Active Substance: ASPIRIN
     Dosage: 100 MG, 1?0?0?0, TABLETTEN
     Route: 048
  4. SPASMOLYT [Concomitant]
     Active Substance: TROSPIUM CHLORIDE
     Dosage: NK MG, 0.5?0?0.5?0
     Route: 048
  5. LEVETIRACETAM. [Concomitant]
     Active Substance: LEVETIRACETAM
     Dosage: 500 MG, 1?0?1?0, TABLETTEN
     Route: 048
  6. EBRANTIL [Suspect]
     Active Substance: URAPIDIL
     Dosage: 90 MG, 1?0?1?0
     Route: 048
  7. ROSUVASTATIN. [Concomitant]
     Active Substance: ROSUVASTATIN
     Dosage: 40 MG, 0?0?1?0, TABLETTEN
     Route: 048
  8. FUROSEMID [Concomitant]
     Active Substance: FUROSEMIDE
     Dosage: 40 MG, 1?0?0.5?0
     Route: 048
  9. [99MTC]TECHNETIUMSESTAMIBI [Suspect]
     Active Substance: TECHNETIUM TC-99M SESTAMIBI
     Dosage: NK
  10. OXCARBAZEPIN [Concomitant]
     Active Substance: OXCARBAZEPINE
     Dosage: 900 MG, 1?0?1?0, TABLETTEN
     Route: 048
  11. PENTALONG 50MG [Concomitant]
     Dosage: 50 MG, 1?0?1?0, TABLETTEN
     Route: 048
  12. LEVETIRACETAM. [Concomitant]
     Active Substance: LEVETIRACETAM
     Dosage: 1000 MG, 1?0?1?0, TABLETTEN
     Route: 048
  13. SODIUM PERTECHNETATE TC 99M [Suspect]
     Active Substance: TECHNETIUM TC-99M SODIUM PERTECHNETATE
     Dosage: 403 MBQ, NK
  14. PANTOPRAZOL [Concomitant]
     Active Substance: PANTOPRAZOLE SODIUM
     Dosage: 40 MG, 1?0?0?0, TABLETTEN
     Route: 048
  15. PREGABALIN. [Concomitant]
     Active Substance: PREGABALIN
     Dosage: 75 MG, 1?0?1?0, TABLETTEN
     Route: 048
  16. LEVOTHYROXIN?NATRIUM [Concomitant]
     Active Substance: LEVOTHYROXINE SODIUM
     Dosage: 50 ?G, 1?0?0?0, TABLETTEN
     Route: 048
  17. EZETROL 10MG [Concomitant]
     Active Substance: EZETIMIBE
     Dosage: 10 MG, 1?0?0?0, TABLETTEN
     Route: 048
  18. CANDESARTAN. [Suspect]
     Active Substance: CANDESARTAN
     Dosage: 32 MG, 0.5?0?0.5?0, TABLETTEN
     Route: 048
  19. ROPINIROL DURA 0,5MG [Concomitant]
     Dosage: 0.5 MG, 0?0?1?1, TABLETTEN
     Route: 048
  20. GLAUPAX 250MG [Concomitant]
     Dosage: 250 MG, 4?0?0?0, TABLETTEN
     Route: 048
  21. TAMSULOSIN [Concomitant]
     Active Substance: TAMSULOSIN
     Dosage: 0.4 MG, 1?0?0?0, TABLETTEN
     Route: 048
  22. BRILIQUE [Concomitant]
     Active Substance: TICAGRELOR
     Dosage: 90 MG, 1?0?1?0, TABLETTEN
     Route: 048
  23. BISOHEXAL PLUS 10/25 [Suspect]
     Active Substance: BISOPROLOL FUMARATE\HYDROCHLOROTHIAZIDE
     Dosage: 10|25 MG, 0.5?0?0?0, TABLETTEN
     Route: 048

REACTIONS (5)
  - General physical health deterioration [Unknown]
  - Hypotension [Unknown]
  - Vomiting [Unknown]
  - Nausea [Unknown]
  - Dizziness [Unknown]

NARRATIVE: CASE EVENT DATE: 202006
